FAERS Safety Report 20953188 (Version 1)
Quarter: 2022Q2

REPORT INFORMATION
  Report Type: Spontaneous
  Country: US (occurrence: US)
  Receive Date: 20220613
  Receipt Date: 20220613
  Transmission Date: 20220721
  Serious: Yes (Hospitalization)
  Sender: FDA-Public Use
  Company Number: US-NOVARTISPH-NVSC2022US134850

PATIENT
  Sex: Female

DRUGS (2)
  1. TAFINLAR [Suspect]
     Active Substance: DABRAFENIB MESYLATE
     Indication: Neoplasm
     Dosage: 150 MG, Q12H
     Route: 048
     Dates: start: 202204
  2. TAFINLAR [Suspect]
     Active Substance: DABRAFENIB MESYLATE
     Dosage: 75 MG, Q12H
     Route: 048

REACTIONS (3)
  - Bone pain [Unknown]
  - Nausea [Unknown]
  - Vomiting [Unknown]
